FAERS Safety Report 10064419 (Version 5)
Quarter: 2014Q3

REPORT INFORMATION
  Report Type: Spontaneous
  Country: JP (occurrence: JP)
  Receive Date: 20140408
  Receipt Date: 20140922
  Transmission Date: 20150326
  Serious: Yes (Hospitalization, Congenital Anomaly, Other)
  Sender: FDA-Public Use
  Company Number: JP-SA-2014SA041457

PATIENT
  Age: 0 Day
  Sex: Female
  Weight: .38 kg

DRUGS (10)
  1. FLOMOX [Concomitant]
     Active Substance: CEFCAPENE PIVOXIL HYDROCHLORIDE HYDRATE
     Dates: start: 20110603, end: 20110606
  2. INSULIN [Concomitant]
     Active Substance: INSULIN NOS
     Indication: GESTATIONAL DIABETES
     Route: 064
  3. HUMALOG [Concomitant]
     Active Substance: INSULIN LISPRO
     Dates: start: 20110511, end: 20110722
  4. FLAGYL [Concomitant]
     Active Substance: METRONIDAZOLE\METRONIDAZOLE HYDROCHLORIDE
     Dates: start: 20110521, end: 20110522
  5. DDAVP [Suspect]
     Active Substance: DESMOPRESSIN ACETATE
     Indication: MATERNAL EXPOSURE TIMING UNSPECIFIED
     Route: 064
     Dates: start: 20110408
  6. ALDOMET [Concomitant]
     Active Substance: METHYLDOPA
     Dates: start: 20110509, end: 20120626
  7. APRESOLINE HYDROCHLORIDE [Concomitant]
     Active Substance: HYDRALAZINE HYDROCHLORIDE
     Dates: start: 20110713, end: 20110725
  8. BIOFERMIN [Concomitant]
     Active Substance: BACILLUS SUBTILIS\LACTOBACILLUS ACIDOPHILUS\STREPTOCOCCUS FAECAIS
     Dosage: POWDER
     Dates: start: 20110519, end: 20110527
  9. ADALAT [Concomitant]
     Active Substance: NIFEDIPINE
     Dates: start: 20110726, end: 20110807
  10. RITODRINE HYDROCHLORIDE [Concomitant]
     Active Substance: RITODRINE HYDROCHLORIDE
     Dates: start: 20110701, end: 20110725

REACTIONS (6)
  - Low birth weight baby [Unknown]
  - Retinopathy of prematurity [Recovering/Resolving]
  - Low birth weight baby [Recovering/Resolving]
  - Foetal growth restriction [Not Recovered/Not Resolved]
  - Foetal exposure during pregnancy [Unknown]
  - Bronchopulmonary dysplasia [Recovering/Resolving]

NARRATIVE: CASE EVENT DATE: 20110725
